FAERS Safety Report 5154929-X (Version None)
Quarter: 2006Q4

REPORT INFORMATION
  Report Type: 
  Country: None (occurrence: None)
  Receive Date: 20061121
  Receipt Date: 20061109
  Transmission Date: 20070319
  Serious: Yes (Hospitalization)
  Sender: FDA-Public Use
  Company Number: PHEH2006US13903

PATIENT
  Age: 59 Year
  Sex: Female

DRUGS (1)
  1. MIACALCIN [Suspect]
     Indication: OSTEOPOROSIS
     Dosage: 200 IU, QD
     Dates: start: 20060201

REACTIONS (6)
  - ABDOMINAL PAIN UPPER [None]
  - APPENDIX DISORDER [None]
  - ARTHRALGIA [None]
  - BACK PAIN [None]
  - COLONOSCOPY ABNORMAL [None]
  - DIVERTICULITIS [None]
